FAERS Safety Report 4804882-0 (Version None)
Quarter: 2005Q4

REPORT INFORMATION
  Report Type: 
  Country: None (occurrence: None)
  Receive Date: 20051017
  Receipt Date: 20050930
  Transmission Date: 20060501
  Serious: Yes (Death, Other)
  Sender: FDA-Public Use
  Company Number: 12655

PATIENT
  Age: 10 Month
  Sex: Male

DRUGS (1)
  1. DILTIAZEM [Suspect]

REACTIONS (8)
  - BLOOD GLUCOSE INCREASED [None]
  - BRADYCARDIA [None]
  - CONVULSION [None]
  - GENERAL PHYSICAL HEALTH DETERIORATION [None]
  - HYPOTENSION [None]
  - LETHARGY [None]
  - TREMOR [None]
  - VOMITING [None]
